FAERS Safety Report 9157065 (Version 1)
Quarter: 2013Q1

REPORT INFORMATION
  Report Type: Spontaneous
  Country: IT (occurrence: None)
  Receive Date: 20130212
  Receipt Date: 20130212
  Transmission Date: 20140127
  Serious: Yes (Other)
  Sender: FDA-Public Use
  Company Number: AUR-APL-2013-01141

PATIENT
  Age: 39 Year
  Sex: Female
  Weight: 89 kg

DRUGS (4)
  1. AMOXICILLIN (AMOXICILLIN) [Suspect]
     Indication: SINUSITIS
     Dosage: 3 DOSAGE FORMS, 1 D, ORAL
     Route: 048
     Dates: start: 20121222, end: 20121223
  2. NEXIUM (ESOMEPRAZOLE MAGNESIUM) [Suspect]
     Dosage: 1 DOSAGE FORMS, 1 D, ORAL
     Route: 048
     Dates: start: 20121210, end: 20121223
  3. VALIUM (DIAZEPAM) [Concomitant]
  4. ZOLOFT (SERTRALINE) [Concomitant]

REACTIONS (2)
  - Gastritis [None]
  - Gastrointestinal disorder [None]
